FAERS Safety Report 7199957-8 (Version None)
Quarter: 2010Q4

REPORT INFORMATION
  Report Type: 
  Country: None (occurrence: None)
  Receive Date: 20101228
  Receipt Date: 20101206
  Transmission Date: 20110411
  Serious: Yes (Other)
  Sender: FDA-Public Use
  Company Number: PHHO2007BR13761

PATIENT
  Age: 76 Year
  Sex: Female

DRUGS (7)
  1. DIOVAN [Suspect]
     Indication: HYPERTENSION
     Dosage: 320 MG, QD
     Route: 048
     Dates: start: 20070101
  2. DIOVAN AMLO [Suspect]
     Indication: HYPERTENSION
     Dosage: 160MG/5MG DAILY
     Route: 048
     Dates: start: 20060101
  3. DIAZEPAM [Concomitant]
  4. TENORETIC 100 [Concomitant]
  5. EUTHYROX [Concomitant]
  6. VYTORIN [Concomitant]
  7. STUGERON [Concomitant]

REACTIONS (13)
  - BACK PAIN [None]
  - BLOOD GLUCOSE INCREASED [None]
  - COUGH [None]
  - DIZZINESS [None]
  - FALL [None]
  - HEADACHE [None]
  - HYPERTENSION [None]
  - JOINT SWELLING [None]
  - MALAISE [None]
  - NODULE [None]
  - OEDEMA PERIPHERAL [None]
  - PAIN IN EXTREMITY [None]
  - VISUAL IMPAIRMENT [None]
